FAERS Safety Report 10036154 (Version 1)
Quarter: 2014Q1

REPORT INFORMATION
  Report Type: Spontaneous
  Country: US (occurrence: None)
  Receive Date: 20140306
  Receipt Date: 20140306
  Transmission Date: 20141002
  Serious: Yes (Other)
  Sender: FDA-Public Use
  Company Number: 163-21880-13120815

PATIENT
  Age: 53 Year
  Sex: Female
  Weight: 88 kg

DRUGS (9)
  1. REVLIMID (LENALIDOMIDE) (CAPSULES) [Suspect]
     Indication: PLASMA CELL MYELOMA
     Route: 048
     Dates: start: 20131029
  2. SAR650984 [Suspect]
     Indication: PLASMA CELL MYELOMA
     Dates: start: 20131029, end: 20131029
  3. DEXAMETHASONE (DEXAMETHASONE) [Suspect]
     Indication: PLASMA CELL MYELOMA
     Route: 048
     Dates: start: 20131029
  4. TRAMADOL/ACETAMINOPHEN [Concomitant]
  5. PANTOPRAZOLE SODIUM (PANTOPRAZOLE SODIUM) [Concomitant]
  6. CALCIUM +D (OS-CAL) [Concomitant]
  7. TYLENOL (PARACETAMOL) [Concomitant]
  8. FAMOTIDINE (FAMOTIDINE) [Concomitant]
  9. KYTRIL (GRANISETRON) [Concomitant]

REACTIONS (3)
  - Throat irritation [None]
  - Vomiting [None]
  - Cough [None]
